FAERS Safety Report 25056845 (Version 1)
Quarter: 2025Q1

REPORT INFORMATION
  Report Type: Spontaneous
  Country: US (occurrence: US)
  Receive Date: 20250310
  Receipt Date: 20250310
  Transmission Date: 20250408
  Serious: Yes (Other)
  Sender: BRISTOL-MYERS SQUIBB COMPANY
  Company Number: US-BRISTOL-MYERS SQUIBB COMPANY-2025-029901

PATIENT
  Age: 82 Year
  Sex: Male
  Weight: 81.6 kg

DRUGS (15)
  1. REVLIMID [Suspect]
     Active Substance: LENALIDOMIDE
     Indication: Plasma cell myeloma
     Route: 048
     Dates: start: 20191202
  2. AMLODIPINE [Concomitant]
     Active Substance: AMLODIPINE BESYLATE
  3. ASPIRIN [Concomitant]
     Active Substance: ASPIRIN
  4. DIPHENHYDRAMINE [Concomitant]
     Active Substance: DIPHENHYDRAMINE
  5. ROSUVASTATIN [Concomitant]
     Active Substance: ROSUVASTATIN
  6. GEMFIBROZIL [Concomitant]
     Active Substance: GEMFIBROZIL
  7. METOPROLOL [Concomitant]
     Active Substance: METOPROLOL
  8. VITAMINS NOS [Concomitant]
     Active Substance: VITAMINS
  9. NITROGLYCERIN [Concomitant]
     Active Substance: NITROGLYCERIN
  10. FISH OIL [Concomitant]
     Active Substance: FISH OIL
  11. TYLENOL [Concomitant]
     Active Substance: ACETAMINOPHEN
  12. PEPCID [Concomitant]
     Active Substance: FAMOTIDINE
  13. ALBUTEROL [Concomitant]
     Active Substance: ALBUTEROL
  14. IBUPROFEN [Concomitant]
     Active Substance: IBUPROFEN
  15. LOPERAMIDE [Concomitant]
     Active Substance: LOPERAMIDE

REACTIONS (1)
  - Basal cell carcinoma [Unknown]
